FAERS Safety Report 5956323-8 (Version None)
Quarter: 2008Q4

REPORT INFORMATION
  Report Type: 
  Country: None (occurrence: None)
  Receive Date: 20081118
  Receipt Date: 20081112
  Transmission Date: 20090506
  Serious: Yes (Death)
  Sender: FDA-Public Use
  Company Number: PHHY2008CA28180

PATIENT
  Sex: Female

DRUGS (2)
  1. EXELON [Suspect]
     Indication: DEMENTIA ALZHEIMER'S TYPE
     Dosage: UNK
     Route: 048
     Dates: start: 20080315
  2. BLINDED NO TREATMENT RECEIVED NOMED [Suspect]
     Indication: DEMENTIA ALZHEIMER'S TYPE
     Dosage: UNK
     Route: 048
     Dates: start: 20080315

REACTIONS (1)
  - DEATH [None]
